FAERS Safety Report 6777930-9 (Version None)
Quarter: 2010Q2

REPORT INFORMATION
  Report Type: 
  Country: None (occurrence: None)
  Receive Date: 20100618
  Receipt Date: 20100610
  Transmission Date: 20101027
  Serious: Yes (Hospitalization)
  Sender: FDA-Public Use
  Company Number: US-BIOGENIDEC-2009BI034514

PATIENT
  Age: 48 Year
  Sex: Female

DRUGS (1)
  1. AVONEX [Suspect]
     Indication: MULTIPLE SCLEROSIS
     Route: 030
     Dates: start: 20060130

REACTIONS (6)
  - CRYING [None]
  - DYSPNOEA [None]
  - FATIGUE [None]
  - HAEMORRHAGIC STROKE [None]
  - PANIC ATTACK [None]
  - TEMPERATURE INTOLERANCE [None]
